FAERS Safety Report 7688649 (Version 2)
Quarter: 2014Q4

REPORT INFORMATION
  Report Type: Spontaneous
  Country: US (occurrence: US)
  Receive Date: 20101201
  Receipt Date: 20141031
  Transmission Date: 20150529
  Serious: Yes (Other)
  Sender: FDA-Public Use
  Company Number: US-ROCHE-722765

PATIENT
  Age: 32 Year
  Sex: Male
  Weight: 79.4 kg

DRUGS (2)
  1. ACCUTANE [Suspect]
     Active Substance: ISOTRETINOIN
     Dosage: 40 MG IN MORNING, 60 MG AT NIGHT
     Route: 065
     Dates: start: 19900411, end: 199006
  2. ACCUTANE [Suspect]
     Active Substance: ISOTRETINOIN
     Indication: ACNE
     Route: 065
     Dates: start: 19900117, end: 19900410

REACTIONS (4)
  - Gastrointestinal injury [Unknown]
  - Colitis ulcerative [Recovering/Resolving]
  - Depression [Unknown]
  - Iritis [Unknown]

NARRATIVE: CASE EVENT DATE: 199010
